FAERS Safety Report 5572275-7 (Version None)
Quarter: 2007Q4

REPORT INFORMATION
  Report Type: 
  Country: None (occurrence: None)
  Receive Date: 20071219
  Receipt Date: 20071203
  Transmission Date: 20080405
  Serious: Yes (Other)
  Sender: FDA-Public Use
  Company Number: TUK2007A00140

PATIENT
  Age: 59 Year
  Sex: Male

DRUGS (9)
  1. COMPETACT (PIOGLITAZONE HYDROCHLORIDE, METFORMIN HYDROCHLORIDE) [Suspect]
     Indication: DIABETES MELLITUS
     Dosage: 15MG PIOGLITAZONE AND 850MG METFORMIN TWICE DAILY
     Route: 048
     Dates: start: 20070321, end: 20070730
  2. AMLODIPINE [Concomitant]
  3. BISOPROLOL FUMARATE [Concomitant]
  4. DOXAZOSIN MESYLATE [Suspect]
  5. ISMO [Concomitant]
  6. ASPIRIN [Concomitant]
  7. LANTUS [Concomitant]
  8. NICORANDIL [Concomitant]
  9. VALSARTAN [Concomitant]

REACTIONS (4)
  - DYSPNOEA EXERTIONAL [None]
  - FLUID RETENTION [None]
  - LEFT VENTRICULAR DYSFUNCTION [None]
  - LEFT VENTRICULAR FAILURE [None]
